FAERS Safety Report 5075668-X (Version None)
Quarter: 2006Q3

REPORT INFORMATION
  Report Type: 
  Country: None (occurrence: None)
  Receive Date: 20060803
  Receipt Date: 20060803
  Transmission Date: 20061208
  Serious: Yes (Hospitalization, Disabling)
  Sender: FDA-Public Use
  Company Number: None

PATIENT
  Sex: Male
  Weight: 105.2345 kg

DRUGS (16)
  1. LINEZOLID [Suspect]
     Indication: INFECTION
     Dosage: 600MG  Q12HRS  IV DRIP
     Route: 041
     Dates: start: 20060721, end: 20060803
  2. MIRTAZAPINE [Suspect]
     Indication: DEPRESSION
     Dosage: 7.5 MG QHS PO
     Route: 048
     Dates: start: 20060726, end: 20060726
  3. METOPROLOL TARTRATE [Concomitant]
  4. OCTREOTIDE ACETATE [Concomitant]
  5. HEPARIN [Concomitant]
  6. OMEPRAZOLE [Concomitant]
  7. DUONEB/ALBUTEROL [Concomitant]
  8. D-EPO [Concomitant]
  9. FELODIPINE [Concomitant]
  10. LINEZOLID [Concomitant]
  11. FLUCONAZOLE [Concomitant]
  12. IMIPENEM [Concomitant]
  13. M.V.I. [Concomitant]
  14. HALDOL [Concomitant]
  15. BENADRYL [Concomitant]
  16. CETYLPYRIDIUM [Concomitant]

REACTIONS (3)
  - DEPRESSION [None]
  - OXYGEN SATURATION DECREASED [None]
  - SEROTONIN SYNDROME [None]
